FAERS Safety Report 22331546 (Version 2)
Quarter: 2023Q2

REPORT INFORMATION
  Report Type: Spontaneous
  Country: TH (occurrence: None)
  Receive Date: 20230517
  Receipt Date: 20230606
  Transmission Date: 20230721
  Serious: Yes (Other)
  Sender: FDA-Public Use
  Company Number: TH-ROCHE-3350334

PATIENT
  Age: 62 Year
  Sex: Female

DRUGS (5)
  1. RITUXIMAB [Suspect]
     Active Substance: RITUXIMAB
     Indication: Product used for unknown indication
     Route: 065
  2. GEMCITABINE [Suspect]
     Active Substance: GEMCITABINE
     Indication: Product used for unknown indication
     Dosage: 15TH TRIPLE THERAPY S/P 1ST GDP + IBRUTINIB
     Route: 065
     Dates: start: 20221216
  3. DEXAMETHASONE [Suspect]
     Active Substance: DEXAMETHASONE
     Indication: Product used for unknown indication
     Dosage: 15TH TRIPLE THERAPY S/P 1ST GDP + IBRUTINIB
     Route: 065
     Dates: start: 20221216
  4. CISPLATIN [Suspect]
     Active Substance: CISPLATIN
     Indication: Product used for unknown indication
     Dosage: 15TH TRIPLE THERAPY S/P 1ST GDP + IBRUTINIB
     Route: 065
     Dates: start: 20221216
  5. IBRUTINIB [Suspect]
     Active Substance: IBRUTINIB
     Indication: Product used for unknown indication
     Dosage: 15TH TRIPLE THERAPY S/P 1ST GDP + IBRUTINIB
     Route: 065
     Dates: start: 20221216

REACTIONS (3)
  - Septic shock [Unknown]
  - Diffuse large B-cell lymphoma [Unknown]
  - Off label use [Unknown]
